FAERS Safety Report 7411833-1 (Version None)
Quarter: 2011Q2

REPORT INFORMATION
  Report Type: 
  Country: None (occurrence: None)
  Receive Date: 20110413
  Receipt Date: 20110328
  Transmission Date: 20111010
  Serious: No
  Sender: FDA-Public Use
  Company Number: US-B.I. PHARMACEUTICALS,INC./RIDGEFIELD-2011-BP-09367BP

PATIENT
  Sex: Female

DRUGS (7)
  1. VITAMIN B-12 [Concomitant]
     Route: 048
  2. ST. JOHN'S WORT [Concomitant]
     Route: 048
  3. MAGNESIUM [Concomitant]
     Route: 048
  4. COENZYME 10 [Concomitant]
     Route: 048
  5. SUPPLEMENTS [Concomitant]
     Route: 048
  6. PRADAXA [Suspect]
     Indication: ATRIAL FIBRILLATION
     Dosage: 300 MG
     Route: 048
     Dates: start: 20110321
  7. VITAMIN B6 [Concomitant]
     Route: 048

REACTIONS (1)
  - DIZZINESS [None]
